FAERS Safety Report 10056679 (Version 2)
Quarter: 2014Q2

REPORT INFORMATION
  Report Type: Spontaneous
  Country: US (occurrence: None)
  Receive Date: 20140401
  Receipt Date: 20140430
  Transmission Date: 20141212
  Serious: Yes (Hospitalization)
  Sender: FDA-Public Use
  Company Number: FK201401068

PATIENT
  Age: 73 Year
  Sex: Male
  Weight: 72.7 kg

DRUGS (15)
  1. LEUCOVORIN (LEUCOVORIN CALCIUM) (LEUCOVORIN CALCIUM) [Suspect]
     Indication: PANCREATIC CARCINOMA
     Route: 042
     Dates: start: 20130930
  2. OXALIPLATIN (OXALIPLATIN) (OXALIPLATIN) [Suspect]
     Indication: PANCREATIC CARCINOMA
     Route: 042
     Dates: start: 20130930
  3. FLUOROURACIL (FLUOROURACIL) (FLUOROURACIL) [Suspect]
     Indication: PANCREATIC CARCINOMA
     Route: 040
     Dates: start: 20130930
  4. IRINOTECAN HCL (IRINOTECAN HCL) (IRINOTECAN HCL) [Suspect]
     Indication: PANCREATIC CARCINOMA
     Route: 042
     Dates: start: 20130930
  5. INVESTIGATIONAL DRUG (INVESTIGATIONAL DRUG) (INVESTIGATIONAL DRUG) [Suspect]
     Indication: PANCREATIC CARCINOMA
     Route: 048
     Dates: start: 20130930, end: 20131122
  6. ASPIRIN (ACETYLSALICYLIC ACID) [Concomitant]
  7. ATORVASTATIN CALCIUM (ATORVASTATIN CALCIUM) [Concomitant]
  8. CLOPIDOGREL SULFATE (CLOPIDOGREL BISULFATE) [Concomitant]
  9. DRONABINOL (DRONABINOL) [Concomitant]
  10. ENOZAPARIN SODIUM (ENOXAPARIN SODIUM) [Concomitant]
  11. HYDROCODONE BITARTRATE/PARACETAMOL (VICODIN) [Concomitant]
  12. LOSARTAN POTASSIUM (LOSARTAN POTASSIUM) [Concomitant]
  13. SYMBICORT (BUDESONIDE W/FORMOTEROL FUMARATE) [Concomitant]
  14. TERAZOSIN (TERAZOSIN) [Concomitant]
  15. NITROSTAT (GLYCERYL TRINITRATE) [Concomitant]

REACTIONS (3)
  - Febrile neutropenia [None]
  - Clostridium difficile colitis [None]
  - Fatigue [None]
